FAERS Safety Report 17153845 (Version 1)
Quarter: 2019Q4

REPORT INFORMATION
  Report Type: Spontaneous
  Country: IN (occurrence: IN)
  Receive Date: 20191213
  Receipt Date: 20191213
  Transmission Date: 20200122
  Serious: Yes (Hospitalization, Other)
  Sender: FDA-Public Use
  Company Number: IN-BAUSCH-BL-2019-063657

PATIENT
  Age: 17 Year
  Sex: Female

DRUGS (2)
  1. METHYLPREDNISOLONE. [Suspect]
     Active Substance: METHYLPREDNISOLONE
     Indication: SCHWANNOMA
     Route: 065
  2. PREDNISOLONE. [Suspect]
     Active Substance: PREDNISOLONE
     Indication: SCHWANNOMA
     Route: 048

REACTIONS (4)
  - Treatment failure [Unknown]
  - Amenorrhoea [Unknown]
  - Cushing^s syndrome [Unknown]
  - Substance-induced psychotic disorder [Unknown]
